FAERS Safety Report 5323358-8 (Version None)
Quarter: 2007Q2

REPORT INFORMATION
  Report Type: 
  Country: None (occurrence: None)
  Receive Date: 20070514
  Receipt Date: 20070507
  Transmission Date: 20071010
  Serious: Yes (Other)
  Sender: FDA-Public Use
  Company Number: PHEH2007US04512

PATIENT
  Age: 54 Year
  Sex: Female
  Weight: 61.224 kg

DRUGS (8)
  1. ZELNORM [Suspect]
     Indication: CONSTIPATION
     Dosage: UNK, BID
     Route: 048
     Dates: start: 20060101, end: 20070301
  2. ZELNORM [Suspect]
     Dosage: UNK, QD
     Route: 048
     Dates: start: 20070301, end: 20070406
  3. TRICOR [Concomitant]
     Indication: HYPERLIPIDAEMIA
  4. ALTACE [Concomitant]
     Indication: HYPERTENSION
     Dosage: UNK, QD
  5. WELLBUTRIN [Concomitant]
     Indication: ANXIETY
     Dosage: 30 MG, QD
  6. ESTRACE [Concomitant]
     Indication: HORMONE REPLACEMENT THERAPY
     Dosage: UNK, QD
  7. NEXIUM [Concomitant]
     Indication: GASTROOESOPHAGEAL REFLUX DISEASE
     Dosage: UNK, QD
  8. ASPIRIN [Concomitant]
     Indication: PROPHYLAXIS
     Dosage: 160 MG, QD

REACTIONS (5)
  - CHEST DISCOMFORT [None]
  - MITRAL VALVE INCOMPETENCE [None]
  - MITRAL VALVE PROLAPSE [None]
  - MUSCLE SPASMS [None]
  - TRICUSPID VALVE INCOMPETENCE [None]
